FAERS Safety Report 9190550 (Version 1)
Quarter: 2013Q1

REPORT INFORMATION
  Report Type: Spontaneous
  Country: PL (occurrence: None)
  Receive Date: 20130322
  Receipt Date: 20130322
  Transmission Date: 20140127
  Serious: Yes (Hospitalization)
  Sender: FDA-Public Use
  Company Number: PIR#CC400173732

PATIENT
  Age: 37 Year
  Sex: Female

DRUGS (1)
  1. CEFUROXIME AXETIL [Suspect]
     Indication: SINUSITIS
     Route: 048

REACTIONS (2)
  - Dermatitis bullous [None]
  - Pruritus [None]
